FAERS Safety Report 8731666 (Version 3)
Quarter: 2012Q4

REPORT INFORMATION
  Report Type: 
  Country: JP (occurrence: JP)
  Receive Date: 20120820
  Receipt Date: 20120912
  Transmission Date: 20130627
  Serious: No
  Sender: FDA-Public Use
  Company Number: JP-PFIZER INC-2012200140

PATIENT
  Age: 71 Year
  Sex: Female

DRUGS (1)
  1. SUTENT [Suspect]
     Indication: GASTROINTESTINAL STROMAL TUMOUR
     Dosage: 50 mg, 1x/day
     Route: 048
     Dates: start: 20120801

REACTIONS (4)
  - Myalgia [Recovered/Resolved]
  - Hypoaesthesia [Recovering/Resolving]
  - Stomatitis [Recovering/Resolving]
  - Platelet count decreased [Recovering/Resolving]
